FAERS Safety Report 18009116 (Version 1)
Quarter: 2020Q3

REPORT INFORMATION
  Report Type: Spontaneous
  Country: US (occurrence: US)
  Receive Date: 20200710
  Receipt Date: 20200710
  Transmission Date: 20201103
  Serious: No
  Sender: FDA-Public Use
  Company Number: US-SAOL THERAPEUTICS-2020SAO00183

PATIENT
  Sex: Male

DRUGS (2)
  1. LIORESAL [Suspect]
     Active Substance: BACLOFEN
     Indication: MUSCLE SPASTICITY
     Dosage: 96 ?G/ML / DAY
     Route: 037
  2. LIORESAL [Suspect]
     Active Substance: BACLOFEN
     Dosage: WEANING DOWN
     Route: 037

REACTIONS (1)
  - Therapeutic product effect variable [Not Recovered/Not Resolved]
